FAERS Safety Report 17558569 (Version 1)
Quarter: 2020Q1

REPORT INFORMATION
  Report Type: Spontaneous
  Country: US (occurrence: US)
  Receive Date: 20200319
  Receipt Date: 20200319
  Transmission Date: 20200409
  Serious: No
  Sender: FDA-Public Use
  Company Number: US-009507513-2003USA005571

PATIENT
  Sex: Female

DRUGS (6)
  1. INTRON A [Suspect]
     Active Substance: INTERFERON ALFA-2B
     Indication: MALIGNANT MELANOMA
     Dosage: INJECT 5 MILLION UNITS(MU), 3 TIMES WEEKLY AND STRENGTH REPORTED AS 10 MU
     Route: 058
  2. INTRON A [Suspect]
     Active Substance: INTERFERON ALFA-2B
     Dosage: INJECT 5 MILLION UNITS(MU), 3 TIMES WEEKLY AND STRENGTH REPORTED AS 10 MU
  3. INTRON A [Suspect]
     Active Substance: INTERFERON ALFA-2B
     Dosage: INJECT 5 MILLION UNITS(MU), 3 TIMES WEEKLY AND STRENGTH REPORTED AS 10 MU
  4. CIMETIDINE [Concomitant]
     Active Substance: CIMETIDINE
     Dosage: UNK
  5. LEVOXYL [Concomitant]
     Active Substance: LEVOTHYROXINE SODIUM
     Dosage: UNK
  6. INTRON A [Suspect]
     Active Substance: INTERFERON ALFA-2B
     Dosage: INJECT 5 MILLION UNITS(MU), 3 TIMES WEEKLY AND STRENGTH REPORTED AS 10 MU

REACTIONS (1)
  - Product dose omission [Unknown]
